FAERS Safety Report 24545295 (Version 1)
Quarter: 2024Q4

REPORT INFORMATION
  Report Type: Spontaneous
  Country: US (occurrence: None)
  Receive Date: 20241023
  Receipt Date: 20241023
  Transmission Date: 20250114
  Serious: No
  Sender: Public
  Company Number: None

PATIENT
  Age: 39 Year
  Sex: Female
  Weight: 135 kg

DRUGS (1)
  1. MOUNJARO [Suspect]
     Active Substance: TIRZEPATIDE
     Indication: Type 2 diabetes mellitus
     Dates: start: 20230823, end: 20241023

REACTIONS (2)
  - Rash erythematous [None]
  - Pruritus [None]

NARRATIVE: CASE EVENT DATE: 20241009
